FAERS Safety Report 7968328-6 (Version None)
Quarter: 2011Q4

REPORT INFORMATION
  Report Type: 
  Country: None (occurrence: None)
  Receive Date: 20111209
  Receipt Date: 20111201
  Transmission Date: 20120403
  Serious: Yes (Hospitalization)
  Sender: FDA-Public Use
  Company Number: IT-CEPHALON-2011006103

PATIENT
  Sex: Male

DRUGS (5)
  1. IVABRADINE [Concomitant]
  2. BENDAMUSTINE HCL [Suspect]
     Route: 042
  3. OMEPRAZOLE [Concomitant]
  4. SIMVASTATIN [Concomitant]
  5. TICLOPIDINA [Concomitant]

REACTIONS (5)
  - HYPERHIDROSIS [None]
  - PANCYTOPENIA [None]
  - MALAISE [None]
  - PYREXIA [None]
  - ASTHENIA [None]
